FAERS Safety Report 5229447-0 (Version None)
Quarter: 2007Q1

REPORT INFORMATION
  Report Type: 
  Country: None (occurrence: None)
  Receive Date: 20070131
  Receipt Date: 20070123
  Transmission Date: 20070707
  Serious: Yes (Death)
  Sender: FDA-Public Use
  Company Number: 20073439

PATIENT
  Sex: Female

DRUGS (2)
  1. LIORESAL [Suspect]
     Indication: MUSCLE SPASTICITY
     Dosage: 1512.5 MCG, DAILY, INTRATHECAL
     Route: 037
  2. MORPHINE [Concomitant]

REACTIONS (1)
  - MULTIPLE SCLEROSIS [None]
